FAERS Safety Report 8288620-8 (Version None)
Quarter: 2012Q2

REPORT INFORMATION
  Report Type: 
  Country: None (occurrence: None)
  Receive Date: 20120416
  Receipt Date: 20120328
  Transmission Date: 20120825
  Serious: No
  Sender: FDA-Public Use
  Company Number: PHEH2012US006997

PATIENT
  Sex: Female

DRUGS (6)
  1. PAROXETINE [Concomitant]
  2. DRONABINOL [Concomitant]
  3. TASIGNA [Suspect]
     Indication: ACUTE LYMPHOCYTIC LEUKAEMIA
     Dosage: 400 MG, BID
     Route: 048
     Dates: start: 20110501
  4. FUROSEMIDE [Concomitant]
  5. OMEPRAZOLE [Suspect]
  6. SYNTHROID [Concomitant]

REACTIONS (2)
  - DRUG INTERACTION [None]
  - DRUG INEFFECTIVE [None]
